FAERS Safety Report 18202518 (Version 2)
Quarter: 2020Q3

REPORT INFORMATION
  Report Type: Spontaneous
  Country: US (occurrence: US)
  Receive Date: 20200827
  Receipt Date: 20200917
  Transmission Date: 20201103
  Serious: No
  Sender: FDA-Public Use
  Company Number: US-BAYER-2020-178470

PATIENT
  Age: 49 Year
  Sex: Female

DRUGS (1)
  1. MIRENA [Suspect]
     Active Substance: LEVONORGESTREL
     Indication: CONTRACEPTION
     Dosage: 20 ?G PER DAY CONTINUOUSLY
     Route: 015
     Dates: start: 20200408, end: 20200803

REACTIONS (3)
  - Menorrhagia [Recovered/Resolved]
  - Device expulsion [Recovered/Resolved]
  - Uterine leiomyoma [None]

NARRATIVE: CASE EVENT DATE: 20200803
